FAERS Safety Report 9816961 (Version 1)
Quarter: 2014Q1

REPORT INFORMATION
  Report Type: Spontaneous
  Country: US (occurrence: US)
  Receive Date: 20140114
  Receipt Date: 20140114
  Transmission Date: 20141002
  Serious: Yes (Other)
  Sender: FDA-Public Use
  Company Number: US-GLAXOSMITHKLINE-A1056599A

PATIENT
  Age: 51 Year
  Sex: Female

DRUGS (1)
  1. ARIXTRA [Suspect]
     Indication: SURGERY
     Route: 042
     Dates: start: 20130415

REACTIONS (2)
  - Neoplasm malignant [Unknown]
  - Surgery [Unknown]
